FAERS Safety Report 8274254-8 (Version None)
Quarter: 2012Q2

REPORT INFORMATION
  Report Type: 
  Country: None (occurrence: None)
  Receive Date: 20120411
  Receipt Date: 20120411
  Transmission Date: 20120825
  Serious: Yes (Other)
  Sender: FDA-Public Use
  Company Number: None

PATIENT
  Age: 59 Year
  Sex: Female
  Weight: 50.8 kg

DRUGS (15)
  1. CLOZAPINE [Suspect]
     Indication: SCHIZOPHRENIA
     Dosage: 100.0 MG
     Route: 048
     Dates: start: 20120130, end: 20120404
  2. CLOZAPINE [Concomitant]
  3. ACETAMINOPHEN [Concomitant]
  4. AMANTADINE HCL [Concomitant]
  5. AMPICILLIN AND SULBACTAM [Concomitant]
  6. CALCIUM-VITAMIN D [Concomitant]
  7. FERROUS SULFATE TAB [Concomitant]
  8. AMMONIUM LACTATE LOTION [Concomitant]
  9. ALUMINUM AND MAGNESIUM HYDROXIDE [Concomitant]
  10. MIRTAZAPINE [Concomitant]
  11. BISACODYL [Concomitant]
  12. CLONAZEPAM [Concomitant]
  13. LITHIUM CARBONATE [Concomitant]
  14. CLOTRIMAZOLE [Concomitant]
  15. MULTI-VITAMINS [Concomitant]

REACTIONS (2)
  - WHITE BLOOD CELL COUNT DECREASED [None]
  - NEUTROPHIL COUNT DECREASED [None]
